FAERS Safety Report 7826853-2 (Version None)
Quarter: 2011Q4

REPORT INFORMATION
  Report Type: 
  Country: None (occurrence: None)
  Receive Date: 20111020
  Receipt Date: 20111011
  Transmission Date: 20120403
  Serious: Yes (Hospitalization)
  Sender: FDA-Public Use
  Company Number: US-US-EMD SERONO, INC.-7089440

PATIENT
  Sex: Female

DRUGS (3)
  1. REBIF [Suspect]
     Indication: PRODUCT USED FOR UNKNOWN INDICATION
     Route: 058
     Dates: start: 20110812, end: 20110923
  2. REBIF [Suspect]
     Route: 058
  3. REBIF [Suspect]
     Route: 058
     Dates: start: 20110928

REACTIONS (3)
  - ACNE [None]
  - CELLULITIS STAPHYLOCOCCAL [None]
  - HEAD DISCOMFORT [None]
